FAERS Safety Report 8520288-5 (Version None)
Quarter: 2012Q3

REPORT INFORMATION
  Report Type: 
  Country: None (occurrence: None)
  Receive Date: 20120713
  Receipt Date: 20120713
  Transmission Date: 20120928
  Serious: Yes (Disabling)
  Sender: FDA-Public Use
  Company Number: None

PATIENT
  Sex: Female

DRUGS (1)
  1. ENBREL [Suspect]
     Dosage: ENBREL 50MG ONCE A WEEK SUB Q
     Route: 058

REACTIONS (2)
  - TONGUE NEOPLASM MALIGNANT STAGE UNSPECIFIED [None]
  - PAPILLOMA VIRAL INFECTION [None]
